FAERS Safety Report 5644185-8 (Version None)
Quarter: 2008Q1

REPORT INFORMATION
  Report Type: 
  Country: None (occurrence: None)
  Receive Date: 20080227
  Receipt Date: 20080227
  Transmission Date: 20080703
  Serious: No
  Sender: FDA-Public Use
  Company Number: None

PATIENT
  Sex: Female
  Weight: 11.3399 kg

DRUGS (1)
  1. TYLENOL (CAPLET) [Suspect]
     Indication: PYREXIA
     Dosage: 1-2 TABLETS EVERY 4 HRS PO
     Route: 048
     Dates: start: 20080216, end: 20080216

REACTIONS (2)
  - EXPIRED DRUG ADMINISTERED [None]
  - MEDICATION TAMPERING [None]
